FAERS Safety Report 8201618-0 (Version None)
Quarter: 2012Q1

REPORT INFORMATION
  Report Type: 
  Country: None (occurrence: None)
  Receive Date: 20120307
  Receipt Date: 20120227
  Transmission Date: 20120608
  Serious: Yes (Other)
  Sender: FDA-Public Use
  Company Number: AUR-APL-2012-01212

PATIENT
  Age: 50 Year
  Sex: Male

DRUGS (9)
  1. DIGOXIN [Concomitant]
  2. ATORVASTATIN [Concomitant]
  3. PERINDOPRIL ERBUMINE [Concomitant]
  4. MIRTAZAPINE [Suspect]
     Indication: PAIN
  5. DULOXETINE HYDROCHLORIDE [Suspect]
     Indication: PAIN
  6. DILTIAZEM [Concomitant]
  7. FOLIC ACID [Concomitant]
  8. PREGABALIN [Concomitant]
  9. VITAMIN D [Concomitant]

REACTIONS (7)
  - WEIGHT INCREASED [None]
  - DECREASED APPETITE [None]
  - MUSCLE CONTRACTURE [None]
  - HYPERSOMNIA [None]
  - BACK DISORDER [None]
  - GAIT DISTURBANCE [None]
  - FEAR [None]
